FAERS Safety Report 10503787 (Version 2)
Quarter: 2014Q4

REPORT INFORMATION
  Report Type: Spontaneous
  Country: FR (occurrence: FR)
  Receive Date: 20141008
  Receipt Date: 20141201
  Transmission Date: 20150528
  Serious: Yes (Life-Threatening)
  Sender: FDA-Public Use
  Company Number: FR-SA-2014SA136349

PATIENT
  Age: 84 Year
  Sex: Female
  Weight: 49 kg

DRUGS (10)
  1. LACTULOSE. [Suspect]
     Active Substance: LACTULOSE
     Route: 048
  2. PREVISCAN [Suspect]
     Active Substance: FLUINDIONE
     Dosage: 15 OR 20 MG DAILY EVERY OTHER DAY,
     Route: 048
     Dates: end: 20140908
  3. APROVEL [Suspect]
     Active Substance: IRBESARTAN
     Route: 048
     Dates: end: 20140908
  4. METEOSPASMYL [Suspect]
     Active Substance: ALVERINE CITRATE\DIMETHICONE
     Route: 048
  5. LERCANIDIPINE HYDROCHLORIDE [Suspect]
     Active Substance: LERCANIDIPINE HYDROCHLORIDE
     Route: 048
     Dates: end: 20140908
  6. AMIODARONE [Suspect]
     Active Substance: AMIODARONE
     Route: 048
     Dates: end: 20140908
  7. BROMAZEPAM [Suspect]
     Active Substance: BROMAZEPAM
     Route: 048
  8. LASILIX [Concomitant]
     Active Substance: FUROSEMIDE
     Route: 048
  9. GAVISCON [Concomitant]
     Active Substance: ALUMINUM HYDROXIDE\MAGNESIUM CARBONATE
     Route: 048
  10. CRESTOR [Suspect]
     Active Substance: ROSUVASTATIN CALCIUM
     Route: 048
     Dates: end: 20140905

REACTIONS (1)
  - Interstitial lung disease [Recovered/Resolved]

NARRATIVE: CASE EVENT DATE: 201409
